FAERS Safety Report 5747962-8 (Version None)
Quarter: 2008Q2

REPORT INFORMATION
  Report Type: 
  Country: None (occurrence: None)
  Receive Date: 20080521
  Receipt Date: 20080506
  Transmission Date: 20081010
  Serious: Yes (Life-Threatening)
  Sender: FDA-Public Use
  Company Number: 2008PV000034

PATIENT
  Age: 58 Year
  Sex: Male
  Weight: 111.5849 kg

DRUGS (12)
  1. DEPODUR [Suspect]
     Indication: PROCEDURAL PAIN
     Dosage: 12.5 MG;1X; ED
     Route: 008
     Dates: start: 20061114, end: 20061114
  2. VERAPAMIL [Concomitant]
  3. CLONIDINE [Concomitant]
  4. TERAZOSIN [Concomitant]
  5. LASIX	/00032601/ [Concomitant]
  6. QUINIDINE HCL [Concomitant]
  7. VICODIN [Concomitant]
  8. OXYCONTIN [Concomitant]
  9. TIZADINE [Concomitant]
  10. ASPIRIN [Concomitant]
  11. ALEVE [Concomitant]
  12. IBUROFEN [Concomitant]

REACTIONS (5)
  - HYPOTENSION [None]
  - HYPOXIA [None]
  - MYOCARDIAL INFARCTION [None]
  - SOMNOLENCE [None]
  - UNRESPONSIVE TO STIMULI [None]
